FAERS Safety Report 8458289-8 (Version None)
Quarter: 2012Q2

REPORT INFORMATION
  Report Type: 
  Country: None (occurrence: None)
  Receive Date: 20120323
  Receipt Date: 20111222
  Transmission Date: 20120825
  Serious: Yes (Hospitalization)
  Sender: FDA-Public Use
  Company Number: 163-21880-11102621

PATIENT
  Age: 66 Year
  Sex: Male

DRUGS (6)
  1. DECADRON [Concomitant]
  2. ASPIRIN [Concomitant]
  3. PERCOCET [Concomitant]
  4. NEURONTIN [Concomitant]
  5. MULTIVITAMIN [Concomitant]
  6. REVLIMID [Suspect]
     Indication: MULTIPLE MYELOMA
     Dosage: 25 MG, DAILY 21 DAYS ON 7 OFF, PO
     Route: 048
     Dates: start: 20110627, end: 20111011

REACTIONS (1)
  - BLOOD CREATININE INCREASED [None]
